FAERS Safety Report 4899271-7 (Version None)
Quarter: 2006Q1

REPORT INFORMATION
  Report Type: 
  Country: None (occurrence: None)
  Receive Date: 20060202
  Receipt Date: 20020425
  Transmission Date: 20060701
  Serious: Yes (Death, Hospitalization)
  Sender: FDA-Public Use
  Company Number: AU-ABBOTT-02P-008-0192088-00

PATIENT
  Age: 30 Year
  Sex: Male

DRUGS (1)
  1. EPILIM TABLETS [Suspect]
     Indication: SUICIDE ATTEMPT
     Dosage: 200TABLETS 500MG
     Route: 048
     Dates: start: 20011202, end: 20011202

REACTIONS (2)
  - COMPLETED SUICIDE [None]
  - INTENTIONAL OVERDOSE [None]
